FAERS Safety Report 20092571 (Version 1)
Quarter: 2021Q4

REPORT INFORMATION
  Report Type: Report from Study
  Country: FR (occurrence: FR)
  Receive Date: 20211119
  Receipt Date: 20211119
  Transmission Date: 20220303
  Serious: Yes (Hospitalization)
  Sender: FDA-Public Use
  Company Number: FR-BAXTER-2021BAX036256

PATIENT
  Age: 65 Year
  Sex: Female
  Weight: 68 kg

DRUGS (19)
  1. CYCLOPHOSPHAMIDE [Suspect]
     Active Substance: CYCLOPHOSPHAMIDE
     Indication: Product used for unknown indication
     Dosage: SINGLE, INDUCTION 2, DAY 1
     Route: 065
     Dates: start: 20210520, end: 20210520
  2. CYCLOPHOSPHAMIDE [Suspect]
     Active Substance: CYCLOPHOSPHAMIDE
     Dosage: REGIMEN # 2, INDUCTION 2, DAY 2
     Route: 065
     Dates: start: 20210521, end: 20210521
  3. CYCLOPHOSPHAMIDE [Suspect]
     Active Substance: CYCLOPHOSPHAMIDE
     Dosage: REGIMEN # 2, INDUCTION 2, DAY 3
     Route: 065
     Dates: start: 20210522, end: 20210522
  4. CYTARABINE [Suspect]
     Active Substance: CYTARABINE
     Indication: Product used for unknown indication
     Dosage: SINGLE, INDUCTION 1, DAY 2
     Route: 065
     Dates: start: 20210422, end: 20210422
  5. CYTARABINE [Suspect]
     Active Substance: CYTARABINE
     Dosage: REGIMEN # 2, INDUCTION 2, DAY 2.
     Route: 065
     Dates: start: 20210521, end: 20210521
  6. VINCRISTINE SULFATE [Suspect]
     Active Substance: VINCRISTINE SULFATE
     Indication: Product used for unknown indication
     Dosage: SINGLE, INDUCTION 1, DAY1
     Route: 065
     Dates: start: 20210424, end: 20210424
  7. VINCRISTINE SULFATE [Suspect]
     Active Substance: VINCRISTINE SULFATE
     Dosage: REGIMEN # 2, SINGLE, INDUCTION 1, DAY8
     Route: 065
     Dates: start: 20210428, end: 20210428
  8. VINCRISTINE SULFATE [Suspect]
     Active Substance: VINCRISTINE SULFATE
     Dosage: REGIMEN # 3, SINGLE, INDUCTION 1, DAY15
     Route: 065
     Dates: start: 20210505, end: 20210505
  9. VINCRISTINE SULFATE [Suspect]
     Active Substance: VINCRISTINE SULFATE
     Dosage: REGIMEN # 4, SINGLE, INDUCTION 1, DAY22
     Route: 065
     Dates: start: 20210512, end: 20210512
  10. METHOTREXATE [Suspect]
     Active Substance: METHOTREXATE
     Indication: Product used for unknown indication
     Dosage: SINGLE, INDUCTION 1, DAY2
     Route: 037
     Dates: start: 20210422, end: 20210422
  11. OXAZEPAM [Concomitant]
     Active Substance: OXAZEPAM
     Indication: Product used for unknown indication
     Route: 065
     Dates: start: 20210422
  12. SMECTA [Concomitant]
     Active Substance: MONTMORILLONITE
     Indication: Product used for unknown indication
     Route: 065
  13. RACECADOTRIL [Concomitant]
     Active Substance: RACECADOTRIL
     Indication: Product used for unknown indication
     Route: 065
  14. MOVICOL [Concomitant]
     Active Substance: POLYETHYLENE GLYCOL 3350\POTASSIUM CHLORIDE\SODIUM BICARBONATE\SODIUM CHLORIDE
     Indication: Product used for unknown indication
     Route: 065
  15. FILGRASTIM [Concomitant]
     Active Substance: FILGRASTIM
     Indication: Product used for unknown indication
     Route: 065
  16. EXJADE [Concomitant]
     Active Substance: DEFERASIROX
     Indication: Product used for unknown indication
     Route: 065
     Dates: start: 20210831, end: 20210923
  17. VALACYCLOVIR HYDROCHLORIDE [Concomitant]
     Active Substance: VALACYCLOVIR HYDROCHLORIDE
     Indication: Product used for unknown indication
     Route: 065
     Dates: start: 20210414
  18. ATOVAQUONE [Concomitant]
     Active Substance: ATOVAQUONE
     Indication: Product used for unknown indication
     Route: 065
     Dates: start: 20210608
  19. ESCITALOPRAM [Concomitant]
     Active Substance: ESCITALOPRAM OXALATE
     Indication: Product used for unknown indication
     Route: 065

REACTIONS (3)
  - Staphylococcal infection [Recovered/Resolved]
  - Device related infection [Recovered/Resolved]
  - Febrile bone marrow aplasia [Recovered/Resolved]

NARRATIVE: CASE EVENT DATE: 20210923
